FAERS Safety Report 21174513 (Version 4)
Quarter: 2022Q4

REPORT INFORMATION
  Report Type: Report from Study
  Country: JP (occurrence: JP)
  Receive Date: 20220805
  Receipt Date: 20221204
  Transmission Date: 20230113
  Serious: Yes (Disabling, Other)
  Sender: FDA-Public Use
  Company Number: JP-NOVARTISPH-NVSJ2022JP091446

PATIENT
  Age: 84 Year
  Sex: Male
  Weight: 64.5 kg

DRUGS (10)
  1. BEOVU [Suspect]
     Active Substance: BROLUCIZUMAB-DBLL
     Indication: Age-related macular degeneration
     Dosage: 6 MG RIGHT EYE
     Route: 031
     Dates: start: 20201015, end: 20201015
  2. BEOVU [Suspect]
     Active Substance: BROLUCIZUMAB-DBLL
     Dosage: 6 MG
     Route: 031
     Dates: start: 20210401, end: 20210401
  3. BEOVU [Suspect]
     Active Substance: BROLUCIZUMAB-DBLL
     Dosage: 6 MG
     Route: 031
     Dates: start: 20210401, end: 20210401
  4. BEOVU [Suspect]
     Active Substance: BROLUCIZUMAB-DBLL
     Dosage: 6 MG
     Route: 031
     Dates: start: 20210701, end: 20210701
  5. BEOVU [Suspect]
     Active Substance: BROLUCIZUMAB-DBLL
     Dosage: 6 MG
     Route: 031
     Dates: start: 20210701, end: 20210701
  6. LUCENTIS [Concomitant]
     Active Substance: RANIBIZUMAB
     Indication: Age-related macular degeneration
     Dosage: 0.05 ML
     Route: 031
     Dates: start: 20140704, end: 20200716
  7. LUCENTIS [Concomitant]
     Active Substance: RANIBIZUMAB
     Dosage: 0.05 ML
     Route: 031
     Dates: start: 20220224, end: 20220526
  8. TRIAMCINOLONE ACETONIDE [Concomitant]
     Active Substance: TRIAMCINOLONE ACETONIDE
     Indication: Iritis
     Dosage: UNK
     Dates: start: 20210401
  9. TRIAMCINOLONE ACETONIDE [Concomitant]
     Active Substance: TRIAMCINOLONE ACETONIDE
     Indication: Retinal perivascular sheathing
     Dosage: UNK
     Dates: start: 20210701
  10. TRIAMCINOLONE ACETONIDE [Concomitant]
     Active Substance: TRIAMCINOLONE ACETONIDE
     Dosage: 80 MG, QD
     Dates: start: 20210709, end: 20210709

REACTIONS (5)
  - Retinal artery occlusion [Not Recovered/Not Resolved]
  - Blindness transient [Recovered/Resolved]
  - Retinal vasculitis [Recovered/Resolved]
  - Retinal perivascular sheathing [Recovered/Resolved]
  - Iritis [Recovered/Resolved]

NARRATIVE: CASE EVENT DATE: 20210709
